FAERS Safety Report 17718433 (Version 2)
Quarter: 2021Q3

REPORT INFORMATION
  Report Type: Spontaneous
  Country: TR (occurrence: TR)
  Receive Date: 20200428
  Receipt Date: 20210929
  Transmission Date: 20211014
  Serious: Yes (Hospitalization)
  Sender: FDA-Public Use
  Company Number: TR-TEVA-2020-TR-1227912

PATIENT
  Age: 65 Year
  Sex: Female

DRUGS (11)
  1. DOCETAXEL. [Suspect]
     Active Substance: DOCETAXEL
     Indication: TRANSITIONAL CELL CARCINOMA
     Route: 065
  2. VINORELBINE [Suspect]
     Active Substance: VINORELBINE TARTRATE
     Indication: RENAL CANCER
  3. CARBOPLATIN. [Suspect]
     Active Substance: CARBOPLATIN
     Indication: TRANSITIONAL CELL CARCINOMA
     Route: 065
  4. GEMCITABINE. [Suspect]
     Active Substance: GEMCITABINE
     Indication: MALIGNANT URINARY TRACT NEOPLASM
  5. GEMCITABINE. [Suspect]
     Active Substance: GEMCITABINE
     Indication: RENAL CANCER
  6. VINORELBINE [Suspect]
     Active Substance: VINORELBINE TARTRATE
     Indication: TRANSITIONAL CELL CARCINOMA
     Route: 065
  7. GEMCITABINE. [Suspect]
     Active Substance: GEMCITABINE
     Indication: TRANSITIONAL CELL CARCINOMA
     Route: 065
  8. CARBOPLATIN. [Suspect]
     Active Substance: CARBOPLATIN
     Indication: RENAL CANCER
  9. VINORELBINE [Suspect]
     Active Substance: VINORELBINE TARTRATE
     Indication: MALIGNANT URINARY TRACT NEOPLASM
  10. VALSARTAN. [Concomitant]
     Active Substance: VALSARTAN
     Indication: HYPERTENSION
     Route: 065
  11. CARBOPLATIN. [Suspect]
     Active Substance: CARBOPLATIN
     Indication: MALIGNANT URINARY TRACT NEOPLASM

REACTIONS (2)
  - Stress cardiomyopathy [Recovered/Resolved]
  - Drug ineffective [Unknown]
